FAERS Safety Report 11877961 (Version 1)
Quarter: 2015Q4

REPORT INFORMATION
  Report Type: Spontaneous
  Country: US (occurrence: US)
  Receive Date: 20151230
  Receipt Date: 20151230
  Transmission Date: 20160305
  Serious: Yes (Death, Hospitalization)
  Sender: FDA-Public Use
  Company Number: US-SUN PHARMACEUTICAL INDUSTRIES LTD-2015US-108712

PATIENT
  Age: 66 Year
  Sex: Female

DRUGS (1)
  1. ACETAMINOPHEN. [Suspect]
     Active Substance: ACETAMINOPHEN
     Indication: PAIN
     Dosage: 14G, DAILY
     Route: 065

REACTIONS (4)
  - Glucose-6-phosphate dehydrogenase deficiency [Unknown]
  - Pulseless electrical activity [Fatal]
  - Methaemoglobinaemia [Unknown]
  - Overdose [Unknown]
